FAERS Safety Report 4839638-6 (Version None)
Quarter: 2005Q4

REPORT INFORMATION
  Report Type: 
  Country: None (occurrence: None)
  Receive Date: 20051129
  Receipt Date: 20050426
  Transmission Date: 20060501
  Serious: No
  Sender: FDA-Public Use
  Company Number: US-GLAXOSMITHKLINE-A0555852A

PATIENT
  Age: 59 Year
  Sex: Female

DRUGS (4)
  1. WELLBUTRIN SR [Suspect]
     Indication: ANXIETY
     Dosage: 150MG TWICE PER DAY
     Route: 048
     Dates: start: 20000101
  2. MENEST [Concomitant]
  3. TRAZODONE [Concomitant]
  4. VITAMINS [Concomitant]

REACTIONS (10)
  - ABNORMAL SENSATION IN EYE [None]
  - AMNESIA [None]
  - ARTHRALGIA [None]
  - DIZZINESS [None]
  - DRY MOUTH [None]
  - DYSPNOEA [None]
  - PHARMACEUTICAL PRODUCT COMPLAINT [None]
  - RESTLESSNESS [None]
  - SENSORY DISTURBANCE [None]
  - THIRST [None]
